FAERS Safety Report 25854315 (Version 1)
Quarter: 2025Q3

REPORT INFORMATION
  Report Type: Report from Study
  Country: EU (occurrence: EU)
  Receive Date: 20250927
  Receipt Date: 20250927
  Transmission Date: 20251020
  Serious: Yes (Other)
  Sender: ABBVIE
  Company Number: EU-ABBVIE-6474041

PATIENT
  Age: 72 Year
  Sex: Male

DRUGS (9)
  1. CARBIDOPA\LEVODOPA [Suspect]
     Active Substance: CARBIDOPA\LEVODOPA
     Indication: Parkinson^s disease
     Route: 050
     Dates: start: 20250506
  2. CARBIDOPA\LEVODOPA [Suspect]
     Active Substance: CARBIDOPA\LEVODOPA
  3. FOSCARBIDOPA\FOSLEVODOPA [Suspect]
     Active Substance: FOSCARBIDOPA\FOSLEVODOPA
     Indication: Parkinson^s disease
     Route: 058
     Dates: end: 202403
  4. BISOPROLOL [Concomitant]
     Active Substance: BISOPROLOL
     Indication: Product used for unknown indication
  5. MARCUMAR [Concomitant]
     Active Substance: PHENPROCOUMON
     Indication: Product used for unknown indication
  6. ENTACAPONE [Concomitant]
     Active Substance: ENTACAPONE
     Indication: Parkinson^s disease
  7. QUETIAPINE [Suspect]
     Active Substance: QUETIAPINE
     Indication: Product used for unknown indication
     Route: 065
  8. CLOZAPINE [Suspect]
     Active Substance: CLOZAPINE
     Indication: Product used for unknown indication
     Route: 065
  9. RIVASTIGMINE [Suspect]
     Active Substance: RIVASTIGMINE
     Indication: Product used for unknown indication
     Route: 065

REACTIONS (17)
  - Dopamine supersensitivity psychosis [Unknown]
  - Infusion site infection [Unknown]
  - Cognitive disorder [Unknown]
  - Paradoxical drug reaction [Unknown]
  - Intestinal obstruction [Unknown]
  - Neurogenic bowel [Unknown]
  - Aggression [Recovered/Resolved]
  - Disorientation [Unknown]
  - On and off phenomenon [Unknown]
  - Parkinsonism [Recovered/Resolved]
  - Anxiety [Recovered/Resolved]
  - Restlessness [Unknown]
  - Hallucination [Recovered/Resolved]
  - Tremor [Recovered/Resolved]
  - Executive dysfunction [Unknown]
  - Mental disorder [Unknown]
  - Constipation [Unknown]

NARRATIVE: CASE EVENT DATE: 20250101
